FAERS Safety Report 6355939-7 (Version None)
Quarter: 2009Q3

REPORT INFORMATION
  Report Type: 
  Country: None (occurrence: None)
  Receive Date: 20090915
  Receipt Date: 20090911
  Transmission Date: 20100115
  Serious: Yes (Death, Life-Threatening, Hospitalization)
  Sender: FDA-Public Use
  Company Number: FR-ROCHE-648424

PATIENT
  Sex: Male

DRUGS (8)
  1. CAPECITABINE [Suspect]
     Indication: METASTATIC GASTRIC CANCER
     Dosage: 1ST CYCLE, 3 CURES
     Route: 065
     Dates: start: 20060305
  2. CAPECITABINE [Suspect]
     Dosage: 2ND CYCLE, 3 CURES
     Route: 065
     Dates: start: 20060529, end: 20060728
  3. EPIRUBICIN HCL [Suspect]
     Indication: METASTATIC GASTRIC CANCER
     Dosage: 1ST CYCLE, 3 CURES
     Route: 065
     Dates: start: 20060305
  4. EPIRUBICIN HCL [Suspect]
     Dosage: 2 CYCLE, 3 CURES
     Route: 065
     Dates: start: 20060529, end: 20060728
  5. CISPLATIN [Suspect]
     Indication: METASTATIC GASTRIC CANCER
     Dosage: 1ST CYCLE, 3 CURES
     Route: 065
     Dates: start: 20060305
  6. CISPLATIN [Suspect]
     Dosage: 2ST CYCLE, 3 CURES
     Route: 065
     Dates: start: 20060529, end: 20060728
  7. DURAGESIC-100 [Concomitant]
     Indication: PAIN
     Route: 062
     Dates: start: 20060905
  8. EPOGEN [Concomitant]

REACTIONS (8)
  - ABDOMINAL PAIN [None]
  - ANAEMIA [None]
  - ASTHENIA [None]
  - GENERAL PHYSICAL HEALTH DETERIORATION [None]
  - MALIGNANT NEOPLASM PROGRESSION [None]
  - METASTATIC GASTRIC CANCER [None]
  - PAIN [None]
  - WEIGHT DECREASED [None]
